FAERS Safety Report 4838980-2 (Version None)
Quarter: 2005Q4

REPORT INFORMATION
  Report Type: 
  Country: None (occurrence: None)
  Receive Date: 20051031
  Receipt Date: 20050816
  Transmission Date: 20060501
  Serious: No
  Sender: FDA-Public Use
  Company Number: 200516253US

PATIENT
  Age: 46 Year
  Sex: Male
  Weight: 73.6 kg

DRUGS (4)
  1. KETEK [Suspect]
     Indication: BRONCHITIS
     Dates: start: 20050705, end: 20050712
  2. COUTH MEDICATIONS NOS [Concomitant]
  3. TRIAMCINOLONE ACETONIDE (KENALOG) [Concomitant]
  4. CEFTRIAXONE SODIUM (ROCEPHIN) [Concomitant]

REACTIONS (3)
  - COUGH [None]
  - MUSCLE SPASMS [None]
  - VISION BLURRED [None]
